FAERS Safety Report 6478583-X (Version None)
Quarter: 2009Q4

REPORT INFORMATION
  Report Type: 
  Country: None (occurrence: None)
  Receive Date: 20091207
  Receipt Date: 20091127
  Transmission Date: 20100525
  Serious: Yes (Hospitalization, Disabling)
  Sender: FDA-Public Use
  Company Number: AU-ELI_LILLY_AND_COMPANY-AU200910006508

PATIENT
  Sex: Female

DRUGS (8)
  1. FORTEO [Suspect]
     Indication: OSTEOPOROSIS
     Dosage: 20 UG, DAILY (1/D)
     Route: 058
     Dates: start: 20091012
  2. PANADOL OSTEO [Concomitant]
     Dosage: 665 MG, 2 TABLETS, 3 TIMES A DAY
     Route: 048
  3. ASPIRIN [Concomitant]
     Dosage: 100 MG, DAILY (1/D)
     Route: 048
  4. CALTRATE /00108001/ [Concomitant]
     Dosage: 600 MG, DAILY (1/D) (1-2 DAILY)
     Route: 048
  5. COLOXYL WITH SENNA [Concomitant]
     Dosage: 1 TO 2 D/F, EACH EVENING
     Route: 048
  6. LASIX M [Concomitant]
     Dosage: 20 MG, DAILY (1/D)
     Route: 048
  7. NULYTELY [Concomitant]
     Dosage: 1 D/F, 2/D (PRN)
     Route: 048
  8. NORSPAN [Concomitant]
     Dosage: UNK, WEEKLY (1/W)
     Route: 062

REACTIONS (3)
  - DIZZINESS [None]
  - FALL [None]
  - HIP FRACTURE [None]
